FAERS Safety Report 8643159 (Version 3)
Quarter: 2013Q2

REPORT INFORMATION
  Report Type: Report from Study
  Country: DE (occurrence: DE)
  Receive Date: 20120629
  Receipt Date: 20130610
  Transmission Date: 20140414
  Serious: Yes (Hospitalization)
  Sender: FDA-Public Use
  Company Number: DE-BRISTOL-MYERS SQUIBB COMPANY-16709586

PATIENT
  Age: 53 Year
  Sex: Female
  Weight: 52 kg

DRUGS (4)
  1. CETUXIMAB [Suspect]
     Indication: NON-SMALL CELL LUNG CANCER
     Dosage: RECENT DOSE:11JUN12;INTER:18JUN12;RESTARTED 2JUL12;11JUN12
     Route: 042
     Dates: start: 20120611
  2. CISPLATIN FOR INJ [Suspect]
     Indication: NON-SMALL CELL LUNG CANCER
     Dosage: RECENT DOSE:12JUN12;INTER:18JUN12;RESTARTED;2JUL12;12JUN12
     Route: 042
     Dates: start: 20120612
  3. CILENGITIDE [Suspect]
     Indication: NON-SMALL CELL LUNG CANCER
     Dosage: INTERRUPTED:18JUN12,RESTARTED ON 2JUL12;11JUN12
     Route: 042
     Dates: start: 20120611
  4. GEMCITABINE [Suspect]
     Indication: NON-SMALL CELL LUNG CANCER
     Dosage: DAY 1 + DAY 8 OF EACH 3-WEEK CYCLE?RECENT DOSE:11JUN12;INTER:18JUN12;RESTARTED:2JUL12;11JUN12
     Route: 042
     Dates: start: 20120611

REACTIONS (1)
  - Peripheral embolism [Recovered/Resolved]
